FAERS Safety Report 10051348 (Version 5)
Quarter: 2014Q4

REPORT INFORMATION
  Report Type: Spontaneous
  Country: US (occurrence: US)
  Receive Date: 20140401
  Receipt Date: 20141104
  Transmission Date: 20150528
  Serious: Yes (Other)
  Sender: FDA-Public Use
  Company Number: US-PFIZER INC-2014088272

PATIENT
  Age: 68 Year
  Sex: Male
  Weight: 83.45 kg

DRUGS (10)
  1. LISINOPRIL. [Concomitant]
     Active Substance: LISINOPRIL
     Dosage: 10 MG, 1X/DAY
     Route: 048
     Dates: start: 20131216
  2. HYDROCODONE/PARACETAMOL [Concomitant]
     Dosage: HYDROCODONE BITARTRATE 7.5 MG, PARACETAMOL 300 MG 1 TABLET, EVERY 4 HOURS, AS PER NEEDED
     Route: 048
     Dates: start: 20140108
  3. ALENDRONATE SODIUM. [Concomitant]
     Active Substance: ALENDRONATE SODIUM
     Dosage: UNK
  4. PEPCID [Concomitant]
     Active Substance: FAMOTIDINE
     Dosage: 20 MG, AS NEEDED
     Route: 048
  5. SUTENT [Suspect]
     Active Substance: SUNITINIB MALATE
     Dosage: 50 MG, CYCLIC
     Route: 048
     Dates: start: 20140123
  6. CYCLOBENZAPRINE HCL [Concomitant]
     Active Substance: CYCLOBENZAPRINE HYDROCHLORIDE
     Dosage: UNK
  7. SUTENT [Suspect]
     Active Substance: SUNITINIB MALATE
     Indication: RENAL CANCER
     Dosage: 50 MG, CYCLIC
     Route: 048
     Dates: start: 20131202
  8. SUTENT [Suspect]
     Active Substance: SUNITINIB MALATE
     Dosage: 37.5 MG (25 MG + 12.5 MG), 4 WEEKS ON, 2 WEEKS OFF
     Route: 048
     Dates: start: 2014, end: 201406
  9. COLACE [Concomitant]
     Active Substance: DOCUSATE SODIUM
     Dosage: 100 MG, 1 CAPSULE, ONCE A DAY, AS PER NEEDED
     Route: 048
  10. CENTRUM SILVER [Concomitant]
     Active Substance: VITAMINS
     Dosage: UNK

REACTIONS (14)
  - Muscular weakness [Unknown]
  - Pancytopenia [Unknown]
  - Fatigue [Unknown]
  - Pain in jaw [Unknown]
  - Arthralgia [Unknown]
  - Arthritis [Unknown]
  - Epistaxis [Unknown]
  - Pain [Unknown]
  - Palmar-plantar erythrodysaesthesia syndrome [Unknown]
  - Memory impairment [Unknown]
  - Insomnia [Unknown]
  - Headache [Unknown]
  - Gingival disorder [Unknown]
  - Paraesthesia [Unknown]

NARRATIVE: CASE EVENT DATE: 20140616
